FAERS Safety Report 11728193 (Version 1)
Quarter: 2015Q4

REPORT INFORMATION
  Report Type: Spontaneous
  Country: CZ (occurrence: CZ)
  Receive Date: 20151112
  Receipt Date: 20151112
  Transmission Date: 20160304
  Serious: Yes (Life-Threatening, Hospitalization, Other)
  Sender: FDA-Public Use
  Company Number: CZ-TEVA-606471ACC

PATIENT
  Age: 70 Year
  Sex: Male
  Weight: 70 kg

DRUGS (5)
  1. KYTRIL [Concomitant]
     Active Substance: GRANISETRON HYDROCHLORIDE
     Route: 042
  2. RANITIDINE [Concomitant]
     Active Substance: RANITIDINE\RANITIDINE HYDROCHLORIDE
     Route: 042
  3. OXALIPLATIN-TEVA 5MG/ML, KONCENTRAT PRO INFUZNI ROZTOK [Suspect]
     Active Substance: OXALIPLATIN
     Indication: RECTAL ADENOCARCINOMA
     Dosage: 122MG IN 500ML G5
     Route: 041
     Dates: start: 20150826, end: 20150826
  4. DEXAMED [Concomitant]
     Route: 042
  5. DITHIADEN [Concomitant]
     Active Substance: BISULEPIN
     Route: 042

REACTIONS (6)
  - Nausea [Recovered/Resolved]
  - Decubitus ulcer [Unknown]
  - Anaemia [Unknown]
  - Dehydration [Unknown]
  - Diabetic metabolic decompensation [Unknown]
  - Abdominal pain [Recovered/Resolved]

NARRATIVE: CASE EVENT DATE: 20150826
